FAERS Safety Report 7048254-X (Version None)
Quarter: 2010Q4

REPORT INFORMATION
  Report Type: 
  Country: None (occurrence: None)
  Receive Date: 20101014
  Receipt Date: 20101014
  Transmission Date: 20110411
  Serious: Yes (Other)
  Sender: FDA-Public Use
  Company Number: None

PATIENT
  Age: 39 Year
  Sex: Male
  Weight: 96.1626 kg

DRUGS (2)
  1. DEXAMETHASONE 1.5MG TAB [Suspect]
     Indication: CONDITION AGGRAVATED
     Dosage: 1.5MG PO
     Route: 048
     Dates: start: 20100927, end: 20101005
  2. DEXAMETHASONE 1.5MG TAB [Suspect]
     Indication: GOUT
     Dosage: 1.5MG PO
     Route: 048
     Dates: start: 20100927, end: 20101005

REACTIONS (1)
  - AGEUSIA [None]
